FAERS Safety Report 23739789 (Version 1)
Quarter: 2024Q2

REPORT INFORMATION
  Report Type: Other
  Country: JP (occurrence: JP)
  Receive Date: 20240414
  Receipt Date: 20240414
  Transmission Date: 20240716
  Serious: Yes (Hospitalization, Other)
  Sender: FDA-Public Use
  Company Number: JP-DEXPHARM-2023-0402

PATIENT
  Age: 77 Year
  Sex: Female

DRUGS (2)
  1. CILOSTAZOL [Concomitant]
     Active Substance: CILOSTAZOL
  2. DONEPEZIL [Suspect]
     Active Substance: DONEPEZIL
     Indication: Dementia Alzheimer^s type
     Dosage: THE PATIENT ACCIDENTALLY OVERDOSED AT 11 PM WITH 15 TABLETS (150 MG)

REACTIONS (8)
  - Overdose [Unknown]
  - Fall [Unknown]
  - Mydriasis [Unknown]
  - Tremor [Recovered/Resolved]
  - Decreased activity [Unknown]
  - Miosis [Unknown]
  - Blood pressure increased [Unknown]
  - Respiratory rate increased [Unknown]
